FAERS Safety Report 10250237 (Version 3)
Quarter: 2015Q1

REPORT INFORMATION
  Report Type: Spontaneous
  Country: US (occurrence: None)
  Receive Date: 20140618
  Receipt Date: 20150108
  Transmission Date: 20150720
  Serious: Yes (Other)
  Sender: FDA-Public Use
  Company Number: A1076733A

PATIENT
  Age: 51 Year
  Sex: Female

DRUGS (3)
  1. SARNA [Suspect]
     Active Substance: CAMPHOR (NATURAL)\MENTHOL\PRAMOXINE HYDROCHLORIDE
     Indication: URTICARIA
     Route: 061
  2. BENADRYL (BENADRYL (NOS)) [Concomitant]
  3. SARNA [Suspect]
     Active Substance: CAMPHOR (NATURAL)\MENTHOL\PRAMOXINE HYDROCHLORIDE
     Indication: HYPERSENSITIVITY
     Route: 061

REACTIONS (5)
  - Asthenia [None]
  - Syncope [None]
  - Loss of consciousness [None]
  - Insomnia [None]
  - Food allergy [None]
